FAERS Safety Report 16486110 (Version 1)
Quarter: 2019Q2

REPORT INFORMATION
  Report Type: Spontaneous
  Country: US (occurrence: US)
  Receive Date: 20190627
  Receipt Date: 20190627
  Transmission Date: 20190711
  Serious: Yes (Hospitalization)
  Sender: FDA-Public Use
  Company Number: US-TEVA-2019-US-1066596

PATIENT
  Sex: Male

DRUGS (1)
  1. METRONIDAZOLE TABLETS [Suspect]
     Active Substance: METRONIDAZOLE
     Indication: DIVERTICULITIS

REACTIONS (3)
  - Product taste abnormal [Unknown]
  - Pain [Unknown]
  - Flank pain [Unknown]
